FAERS Safety Report 10423534 (Version 2)
Quarter: 2014Q3

REPORT INFORMATION
  Report Type: Spontaneous
  Country: US (occurrence: US)
  Receive Date: 20140902
  Receipt Date: 20140929
  Transmission Date: 20150326
  Serious: No
  Sender: FDA-Public Use
  Company Number: US-PFIZER INC-2014241362

PATIENT
  Age: 23 Year
  Sex: Female

DRUGS (1)
  1. PROCARDIA [Suspect]
     Active Substance: NIFEDIPINE
     Indication: THREATENED LABOUR
     Dosage: UNK
     Dates: start: 200303

REACTIONS (3)
  - Drug hypersensitivity [Unknown]
  - Off label use [Unknown]
  - Rash erythematous [Unknown]

NARRATIVE: CASE EVENT DATE: 200303
